FAERS Safety Report 25698456 (Version 1)
Quarter: 2025Q3

REPORT INFORMATION
  Report Type: Spontaneous
  Country: US (occurrence: US)
  Receive Date: 20250819
  Receipt Date: 20250819
  Transmission Date: 20251021
  Serious: No
  Sender: Haleon PLC
  Company Number: US-HALEON-2258273

PATIENT

DRUGS (2)
  1. NEXIUM 24HR [Suspect]
     Active Substance: ESOMEPRAZOLE MAGNESIUM
     Indication: Product used for unknown indication
  2. NEXIUM 24HR CLEARMINIS [Suspect]
     Active Substance: ESOMEPRAZOLE MAGNESIUM
     Indication: Product used for unknown indication

REACTIONS (1)
  - Drug ineffective [Unknown]
